FAERS Safety Report 5160677-2 (Version None)
Quarter: 2006Q4

REPORT INFORMATION
  Report Type: 
  Country: None (occurrence: None)
  Receive Date: 20061121
  Receipt Date: 20061108
  Transmission Date: 20070319
  Serious: Yes (Other)
  Sender: FDA-Public Use
  Company Number: 231305

PATIENT
  Age: 79 Year
  Sex: Male
  Weight: 81.2 kg

DRUGS (9)
  1. AVASTIN [Suspect]
     Indication: COLORECTAL CANCER
     Dosage: 400 MG, QOW, INTRAVENOUS
     Route: 042
     Dates: start: 20060811
  2. FLUOROURACIL [Concomitant]
  3. ERBITUX [Concomitant]
  4. PROCRIT [Concomitant]
  5. NEXIUM [Concomitant]
  6. UNKNOWN DRUG (GENERIC COMPONENT(S) [Concomitant]
  7. ALLOPURINOL [Concomitant]
  8. PROSCAR [Concomitant]
  9. MEGACE [Concomitant]

REACTIONS (2)
  - HAEMODIALYSIS [None]
  - METABOLIC ACIDOSIS [None]
